FAERS Safety Report 7921358-2 (Version None)
Quarter: 2011Q4

REPORT INFORMATION
  Report Type: 
  Country: None (occurrence: None)
  Receive Date: 20111117
  Receipt Date: 20111114
  Transmission Date: 20120403
  Serious: Yes (Death, Other)
  Sender: FDA-Public Use
  Company Number: CA-ROCHE-1012723

PATIENT

DRUGS (13)
  1. IFOSFAMIDE [Suspect]
     Indication: B-CELL LYMPHOMA
     Route: 065
  2. CARBOPLATIN [Suspect]
     Indication: B-CELL LYMPHOMA
     Route: 065
  3. ETOPOSIDE [Suspect]
     Indication: B-CELL LYMPHOMA
     Route: 065
  4. MABTHERA [Suspect]
     Indication: B-CELL LYMPHOMA
     Route: 065
  5. COLONY STIMULATING FACTORS [Suspect]
     Indication: B-CELL LYMPHOMA
     Route: 065
  6. FLUDARABINE PHOSPHATE [Suspect]
     Indication: B-CELL LYMPHOMA
     Route: 065
  7. BUSULFAN [Suspect]
     Indication: B-CELL LYMPHOMA
     Route: 042
  8. PREDNISONE TAB [Suspect]
     Indication: B-CELL LYMPHOMA
     Route: 065
  9. CISPLATIN [Suspect]
     Indication: B-CELL LYMPHOMA
     Route: 065
  10. CYCLOPHOSPHAMIDE [Suspect]
     Indication: B-CELL LYMPHOMA
     Dosage: 2 G/M2
     Route: 065
  11. DOXORUBICIN HCL [Suspect]
     Indication: B-CELL LYMPHOMA
     Route: 065
  12. VINCRISTINE [Suspect]
     Indication: B-CELL LYMPHOMA
     Route: 065
  13. IBRITUMOMAB TIUXETAN [Suspect]
     Indication: B-CELL LYMPHOMA
     Route: 065

REACTIONS (3)
  - SEPSIS [None]
  - MENINGITIS TUBERCULOUS [None]
  - PROGRESSIVE MULTIFOCAL LEUKOENCEPHALOPATHY [None]
